FAERS Safety Report 7793193-X (Version None)
Quarter: 2011Q4

REPORT INFORMATION
  Report Type: 
  Country: None (occurrence: None)
  Receive Date: 20111003
  Receipt Date: 20110927
  Transmission Date: 20120403
  Serious: No
  Sender: FDA-Public Use
  Company Number: US-TEVA-303010USA

PATIENT
  Age: 12 Year
  Sex: Female

DRUGS (1)
  1. PROAIR HFA [Suspect]
     Indication: BRONCHIAL HYPERREACTIVITY
     Route: 055

REACTIONS (2)
  - COUGH [None]
  - FEELING JITTERY [None]
